FAERS Safety Report 15806008 (Version 2)
Quarter: 2023Q2

REPORT INFORMATION
  Report Type: Spontaneous
  Country: US (occurrence: US)
  Receive Date: 20190110
  Receipt Date: 20230627
  Transmission Date: 20230722
  Serious: Yes (Hospitalization)
  Sender: FDA-Public Use
  Company Number: US-TEVA-2019-US-994632

PATIENT
  Age: 65 Year
  Sex: Female
  Weight: 100 kg

DRUGS (1)
  1. ENOXAPARIN SODIUM [Suspect]
     Active Substance: ENOXAPARIN SODIUM
     Indication: Anticoagulant therapy
     Route: 065

REACTIONS (3)
  - Abdominal wall haematoma [Recovering/Resolving]
  - Abdominal wall haemorrhage [Recovering/Resolving]
  - Shock haemorrhagic [Recovering/Resolving]
